FAERS Safety Report 22648396 (Version 1)
Quarter: 2023Q2

REPORT INFORMATION
  Report Type: Spontaneous
  Country: US (occurrence: US)
  Receive Date: 20230628
  Receipt Date: 20230628
  Transmission Date: 20230721
  Serious: No
  Sender: FDA-Public Use
  Company Number: US-JNJFOC-20230655400

PATIENT
  Age: 61 Year
  Sex: Female

DRUGS (2)
  1. SPRAVATO [Suspect]
     Active Substance: ESKETAMINE
     Indication: Depression
     Route: 045
     Dates: start: 20230612, end: 20230612
  2. SPRAVATO [Suspect]
     Active Substance: ESKETAMINE
     Route: 045
     Dates: start: 20230614, end: 20230614

REACTIONS (4)
  - Rhinorrhoea [Recovered/Resolved]
  - Anxiety [Unknown]
  - Feeling jittery [Unknown]
  - Malaise [Unknown]

NARRATIVE: CASE EVENT DATE: 20230612
